FAERS Safety Report 12839627 (Version 1)
Quarter: 2016Q4

REPORT INFORMATION
  Report Type: Report from Study
  Country: US (occurrence: US)
  Receive Date: 20161012
  Receipt Date: 20161012
  Transmission Date: 20170207
  Serious: No
  Sender: FDA-Public Use
  Company Number: US-AMGEN-USASL2016031638

PATIENT
  Age: 82 Year
  Sex: Female

DRUGS (2)
  1. TYLENOL [Concomitant]
     Active Substance: ACETAMINOPHEN
  2. PROLIA [Suspect]
     Active Substance: DENOSUMAB
     Indication: OSTEOPOROSIS POSTMENOPAUSAL
     Dosage: UNK
     Route: 065

REACTIONS (13)
  - Headache [Unknown]
  - Bone pain [Unknown]
  - Body height decreased [Unknown]
  - Dizziness [Recovered/Resolved]
  - Spinal disorder [Unknown]
  - Gait disturbance [Not Recovered/Not Resolved]
  - Dysstasia [Not Recovered/Not Resolved]
  - Arthralgia [Unknown]
  - Pain [Unknown]
  - Back pain [Unknown]
  - Skin disorder [Unknown]
  - Fracture [Unknown]
  - Pain in jaw [Unknown]

NARRATIVE: CASE EVENT DATE: 201603
